FAERS Safety Report 7248092 (Version 3)
Quarter: 2014Q1

REPORT INFORMATION
  Report Type: Spontaneous
  Country: US (occurrence: US)
  Receive Date: 20100118
  Receipt Date: 20140131
  Transmission Date: 20141002
  Serious: Yes (Hospitalization, Other)
  Sender: FDA-Public Use
  Company Number: US-JNJFOC-20100103566

PATIENT
  Age: 53 Year
  Sex: Female
  Weight: 69.4 kg

DRUGS (6)
  1. DURAGESIC [Suspect]
     Indication: SPINAL OSTEOARTHRITIS
     Dosage: 2 OF 100 UG/HR PATCH
     Route: 062
     Dates: start: 2005, end: 20100102
  2. DURAGESIC [Suspect]
     Indication: BACK PAIN
     Route: 062
     Dates: start: 20100102
  3. DURAGESIC [Suspect]
     Indication: BACK PAIN
     Route: 062
     Dates: start: 201001
  4. DURAGESIC [Suspect]
     Indication: SPINAL OSTEOARTHRITIS
     Route: 062
     Dates: start: 20100102
  5. DURAGESIC [Suspect]
     Indication: SPINAL OSTEOARTHRITIS
     Route: 062
     Dates: start: 201001
  6. NORCO [Concomitant]
     Indication: PAIN
     Dosage: 325/5
     Route: 048

REACTIONS (11)
  - Osteoarthritis [Not Recovered/Not Resolved]
  - Product quality issue [Unknown]
  - Drug administered at inappropriate site [Not Recovered/Not Resolved]
  - Blood cholesterol increased [Not Recovered/Not Resolved]
  - Rash [Recovered/Resolved]
  - Rash [Not Recovered/Not Resolved]
  - Insomnia [Recovered/Resolved]
  - Abdominal discomfort [Recovered/Resolved]
  - Drug ineffective [Recovered/Resolved]
  - Pain in extremity [Not Recovered/Not Resolved]
  - Withdrawal syndrome [Recovered/Resolved]
